FAERS Safety Report 7481474-9 (Version None)
Quarter: 2011Q2

REPORT INFORMATION
  Report Type: 
  Country: None (occurrence: None)
  Receive Date: 20110516
  Receipt Date: 20110506
  Transmission Date: 20111010
  Serious: Yes (Other)
  Sender: FDA-Public Use
  Company Number: PHHY2011US39655

PATIENT
  Sex: Female

DRUGS (4)
  1. VITAMIN C [Concomitant]
     Dosage: UNK
  2. BENADRYL ^ACHE^ [Concomitant]
     Dosage: 25 MG, UNK
  3. CRANBERRY CAPSULE [Concomitant]
     Dosage: 2 CAPULE
  4. GILENYA [Suspect]
     Dosage: 0.5 MG, QD
     Route: 048

REACTIONS (2)
  - INTERNATIONAL NORMALISED RATIO INCREASED [None]
  - URINARY TRACT INFECTION [None]
